FAERS Safety Report 5856769-2 (Version None)
Quarter: 2008Q3

REPORT INFORMATION
  Report Type: 
  Country: None (occurrence: None)
  Receive Date: 20080822
  Receipt Date: 20080822
  Transmission Date: 20090109
  Serious: Yes (Hospitalization)
  Sender: FDA-Public Use
  Company Number: None

PATIENT
  Sex: Male
  Weight: 93.8946 kg

DRUGS (6)
  1. DOBUTAMINE HYDROCHLORIDE [Suspect]
     Indication: CARDIAC STRESS TEST
     Dosage: 10 MCG/KG/MIN EVERY 3 MIN IV
     Route: 042
     Dates: start: 20080609
  2. HYDROCHLOROTHIAZIDE [Concomitant]
  3. KCL CR [Concomitant]
  4. METOPROLOL TARTRATE [Concomitant]
  5. ZYRTEC [Concomitant]
  6. SUDAFED 12 HOUR [Concomitant]

REACTIONS (2)
  - CONVULSION [None]
  - DIZZINESS [None]
